FAERS Safety Report 7563071-X (Version None)
Quarter: 2011Q2

REPORT INFORMATION
  Report Type: 
  Country: None (occurrence: None)
  Receive Date: 20110621
  Receipt Date: 20110621
  Transmission Date: 20111010
  Serious: Yes (Death, Hospitalization)
  Sender: FDA-Public Use
  Company Number: None

PATIENT
  Sex: Male
  Weight: 99.9 kg

DRUGS (5)
  1. BUDESONIDE [Concomitant]
  2. CLONIDINE [Concomitant]
  3. CISPLATIN [Suspect]
     Dosage: 53MG
  4. PACLITAXEL [Suspect]
     Dosage: 105MG
  5. ALBUTEROL SULFATE AUTOHALER [Concomitant]

REACTIONS (1)
  - RESPIRATORY FAILURE [None]
